FAERS Safety Report 4402657-8 (Version None)
Quarter: 2004Q3

REPORT INFORMATION
  Report Type: 
  Country: None (occurrence: None)
  Receive Date: 20040715
  Receipt Date: 20040706
  Transmission Date: 20050211
  Serious: Yes (Death)
  Sender: FDA-Public Use
  Company Number: KII-1999-0011950

PATIENT
  Age: 71 Year
  Sex: Male

DRUGS (1)
  1. MS CONTIN [Suspect]
     Indication: CANCER PAIN
     Dosage: 100 MG, TID

REACTIONS (1)
  - ACUTE MYOCARDIAL INFARCTION [None]
